FAERS Safety Report 6928108-7 (Version None)
Quarter: 2010Q3

REPORT INFORMATION
  Report Type: 
  Country: None (occurrence: None)
  Receive Date: 20100817
  Receipt Date: 20100809
  Transmission Date: 20110219
  Serious: Yes (Other)
  Sender: FDA-Public Use
  Company Number: GB-ASTRAZENECA-2010SE37300

PATIENT
  Age: 57 Year
  Sex: Female

DRUGS (2)
  1. ATENOLOL [Suspect]
     Indication: ESSENTIAL HYPERTENSION
  2. BENDROFLUMETHIAZIDE [Suspect]
     Indication: ESSENTIAL HYPERTENSION

REACTIONS (9)
  - ARCUS LIPOIDES [None]
  - DYSPEPSIA [None]
  - FOREIGN BODY SENSATION IN EYES [None]
  - LETHARGY [None]
  - MILK-ALKALI SYNDROME [None]
  - NOCTURIA [None]
  - OCULAR HYPERAEMIA [None]
  - OEDEMA PERIPHERAL [None]
  - POLYURIA [None]
